FAERS Safety Report 24711568 (Version 2)
Quarter: 2025Q1

REPORT INFORMATION
  Report Type: Other
  Country: CA (occurrence: CA)
  Receive Date: 20241209
  Receipt Date: 20250228
  Transmission Date: 20250408
  Serious: Yes (Other)
  Sender: TOLMAR
  Company Number: CA-TOLMAR, INC.-24CA054061

PATIENT
  Sex: Male

DRUGS (4)
  1. ELIGARD [Suspect]
     Active Substance: LEUPROLIDE ACETATE
     Indication: Prostate cancer
     Dosage: 45 MILLIGRAM, Q 6 MONTH
     Route: 058
     Dates: start: 20231220
  2. ELIGARD [Suspect]
     Active Substance: LEUPROLIDE ACETATE
     Dosage: 45 MILLIGRAM, Q 6 MONTH
     Route: 058
     Dates: start: 20240604
  3. ELIGARD [Suspect]
     Active Substance: LEUPROLIDE ACETATE
     Dosage: 45 MILLIGRAM, Q 6 MONTH
     Route: 058
     Dates: start: 20241120
  4. ELIGARD [Suspect]
     Active Substance: LEUPROLIDE ACETATE
     Indication: Prostate cancer

REACTIONS (5)
  - Dementia [Not Recovered/Not Resolved]
  - Schizophrenia [Unknown]
  - Gait inability [Unknown]
  - Feeling of despair [Unknown]
  - Pain in extremity [Unknown]
